FAERS Safety Report 8274100-2 (Version None)
Quarter: 2012Q2

REPORT INFORMATION
  Report Type: 
  Country: None (occurrence: None)
  Receive Date: 20120411
  Receipt Date: 20120405
  Transmission Date: 20120825
  Serious: Yes (Other)
  Sender: FDA-Public Use
  Company Number: US-PFIZER INC-2012086807

PATIENT
  Sex: Female
  Weight: 95.238 kg

DRUGS (9)
  1. CADUET [Suspect]
     Indication: HYPERTENSION
  2. DETROL LA [Suspect]
     Indication: BLADDER DISORDER
     Dosage: 4 MG, UNK
     Route: 048
     Dates: end: 20110101
  3. AMLODIPINE BESYLATE [Suspect]
     Indication: HYPERTENSION
     Dosage: UNK
     Dates: end: 20110101
  4. SYNTHROID [Concomitant]
     Dosage: UNK
  5. LISINOPRIL [Suspect]
     Indication: HYPERTENSION
     Dosage: 20 MG, DAILY
  6. CADUET [Suspect]
     Indication: BLOOD CHOLESTEROL INCREASED
     Dosage: AMLODIPINE BESILATE 10 MG/ATORVASTATIN CALCIUM 80 MG
     Route: 048
     Dates: end: 20110101
  7. NORVASC [Suspect]
     Indication: HYPERTENSION
     Dosage: UNK
     Route: 048
     Dates: end: 20110101
  8. LIPITOR [Suspect]
     Indication: BLOOD CHOLESTEROL INCREASED
     Dosage: 40 MG, UNK
     Route: 048
     Dates: end: 20110101
  9. TOLTERODINE TARTRATE [Suspect]
     Indication: BLADDER DISORDER
     Dosage: UNK
     Dates: end: 20110101

REACTIONS (4)
  - DRUG INEFFECTIVE [None]
  - HEART RATE IRREGULAR [None]
  - HYPERTENSION [None]
  - BLOOD CHOLESTEROL INCREASED [None]
